FAERS Safety Report 9077569 (Version 4)
Quarter: 2014Q2

REPORT INFORMATION
  Report Type: Spontaneous
  Country: BR (occurrence: BR)
  Receive Date: 20130130
  Receipt Date: 20140425
  Transmission Date: 20141212
  Serious: Yes (Hospitalization, Other)
  Sender: FDA-Public Use
  Company Number: BR-AMGEN-BRASP2013006311

PATIENT
  Age: 11 Year
  Sex: Female
  Weight: 29 kg

DRUGS (13)
  1. ENBREL [Suspect]
     Indication: ANKYLOSING SPONDYLITIS
     Dosage: 25 MG, WEEKLY
     Route: 058
     Dates: start: 201211, end: 201302
  2. ENBREL [Suspect]
     Indication: JUVENILE IDIOPATHIC ARTHRITIS
     Dosage: 25 MG, WEEKLY
     Route: 058
     Dates: start: 201307
  3. ENBREL [Suspect]
     Dosage: 25 MG, WEEKLY
     Route: 058
     Dates: start: 201307, end: 2013
  4. ENBREL [Suspect]
     Dosage: 25 MG, ONCE A WEEK
     Route: 058
     Dates: end: 201401
  5. TRIAMCINOLONE [Concomitant]
     Indication: JUVENILE IDIOPATHIC ARTHRITIS
     Dosage: 5 MG, UNK
  6. METHOTREXATE [Concomitant]
     Indication: RHEUMATOID ARTHRITIS
     Dosage: 0.5 MG, UNK
     Route: 048
  7. METHOTREXATE [Concomitant]
     Dosage: 1MG, 1X/DAY
  8. METHOTREXATE [Concomitant]
     Dosage: 1 MG, PER DAY
  9. FAMOTIDINE [Concomitant]
     Indication: GASTRIC DISORDER
     Dosage: UNK
  10. INDOMETACIN [Concomitant]
     Dosage: 25 MG, UNK
  11. FOLIC ACID [Concomitant]
     Dosage: 5 MG, 1X/DAY
  12. FOLIC ACID [Concomitant]
     Dosage: 5 MG, ONCE A DAY
  13. PRELONE                            /00016201/ [Concomitant]
     Dosage: UNK

REACTIONS (10)
  - Pyrexia [Not Recovered/Not Resolved]
  - Diarrhoea [Unknown]
  - Vomiting [Unknown]
  - Diarrhoea haemorrhagic [Unknown]
  - Abdominal pain upper [Unknown]
  - Dehydration [Not Recovered/Not Resolved]
  - Weight decreased [Recovering/Resolving]
  - Anaemia [Not Recovered/Not Resolved]
  - Injection site erythema [Not Recovered/Not Resolved]
  - Injection site pruritus [Not Recovered/Not Resolved]
